FAERS Safety Report 24447444 (Version 2)
Quarter: 2024Q4

REPORT INFORMATION
  Report Type: Spontaneous
  Country: US (occurrence: US)
  Receive Date: 20241016
  Receipt Date: 20241016
  Transmission Date: 20250115
  Serious: No
  Sender: SANOFI AVENTIS
  Company Number: US-SANOFI-02246418

PATIENT
  Age: 70 Year
  Sex: Male

DRUGS (1)
  1. TOUJEO [Suspect]
     Active Substance: INSULIN GLARGINE
     Indication: Type 2 diabetes mellitus
     Dosage: 40 IU, HS
     Route: 058
     Dates: start: 2019

REACTIONS (2)
  - Blood glucose increased [Recovered/Resolved]
  - Therapeutic response decreased [Recovered/Resolved]

NARRATIVE: CASE EVENT DATE: 20240101
